FAERS Safety Report 23074810 (Version 1)
Quarter: 2023Q4

REPORT INFORMATION
  Report Type: Spontaneous
  Country: US (occurrence: US)
  Receive Date: 20231017
  Receipt Date: 20231017
  Transmission Date: 20240109
  Serious: Yes (Other)
  Sender: FDA-Public Use
  Company Number: US-SHR-US-2005-009386

PATIENT
  Age: 16 Year
  Sex: Male

DRUGS (9)
  1. CAMPATH [Suspect]
     Active Substance: ALEMTUZUMAB
     Dosage: 30 MG, 1X
     Route: 041
  2. CAMPATH [Suspect]
     Active Substance: ALEMTUZUMAB
     Dosage: 30 MG, 1X
     Route: 041
  3. METHYLPREDNISOLONE [Suspect]
     Active Substance: METHYLPREDNISOLONE
     Indication: Immunosuppressant drug therapy
     Dosage: UNK UNK,UNK
  4. ANTI-THYMOCYTE GLOBULIN (RABBIT) NOS [Suspect]
     Active Substance: LAPINE T-LYMPHOCYTE IMMUNE GLOBULIN
     Indication: Transplant rejection
  5. MYCOPHENOLATE MOFETIL [Suspect]
     Active Substance: MYCOPHENOLATE MOFETIL
     Indication: Immunosuppressant drug therapy
     Dosage: UNK UNK,UNK
     Route: 048
  6. TACROLIMUS [Suspect]
     Active Substance: TACROLIMUS
     Indication: Immunosuppressant drug therapy
  7. VALGANCICLOVIR [Concomitant]
     Active Substance: VALGANCICLOVIR
     Indication: Infection prophylaxis
  8. BACTRIM [Concomitant]
     Active Substance: SULFAMETHOXAZOLE\TRIMETHOPRIM
     Indication: Infection prophylaxis
  9. NYSTATIN [Concomitant]
     Active Substance: NYSTATIN
     Indication: Infection prophylaxis
     Dosage: UNK

REACTIONS (5)
  - Transplant rejection [Recovered/Resolved]
  - Renal vein thrombosis [Recovered/Resolved]
  - Urinary tract infection [Unknown]
  - Product administered to patient of inappropriate age [Unknown]
  - Off label use [Unknown]
